FAERS Safety Report 6970916-0 (Version None)
Quarter: 2010Q3

REPORT INFORMATION
  Report Type: 
  Country: None (occurrence: None)
  Receive Date: 20100908
  Receipt Date: 20100824
  Transmission Date: 20110219
  Serious: Yes (Disabling, Other)
  Sender: FDA-Public Use
  Company Number: CO-PFIZER INC-2010107819

PATIENT
  Age: 80 Year
  Sex: Female

DRUGS (3)
  1. LOPID [Suspect]
     Indication: BLOOD TRIGLYCERIDES INCREASED
     Dosage: UNK
     Dates: start: 20100601
  2. OLMETEC [Suspect]
     Indication: HYPERTENSION
     Dosage: 1 DF, 1X/DAY
     Route: 048
  3. ACETAMINOPHEN W/ CODEINE [Concomitant]
     Indication: ARTHRALGIA

REACTIONS (2)
  - OSTEOARTHRITIS [None]
  - RENAL FAILURE [None]
